FAERS Safety Report 5023385-4 (Version None)
Quarter: 2006Q2

REPORT INFORMATION
  Report Type: 
  Country: None (occurrence: None)
  Receive Date: 20060606
  Receipt Date: 20060524
  Transmission Date: 20061013
  Serious: Yes (Hospitalization, Other)
  Sender: FDA-Public Use
  Company Number: HQWYE538025MAY06

PATIENT
  Age: 41 Year
  Sex: Male

DRUGS (11)
  1. RAPAMUNE [Suspect]
     Indication: PROPHYLAXIS AGAINST TRANSPLANT REJECTION
     Dosage: PER PROTOCOL;
     Dates: start: 20060201, end: 20060510
  2. MYCOPHENOLATE MOFETIL [Concomitant]
  3. PREDNISOLONE [Concomitant]
  4. FUROSEMID ^DAK^ (FUROSEMIDE) [Concomitant]
  5. BACTRIM (SULFAMETHOXAZOLE/TRIMETHOPRIUM) [Concomitant]
  6. ALBYL (ACETYLSALICYLIC ACID) [Concomitant]
  7. METOPROLOL SUCCINATE [Concomitant]
  8. NORVASC [Concomitant]
  9. CARDURA [Concomitant]
  10. NEXIUM [Concomitant]
  11. NEXIUM [Concomitant]

REACTIONS (2)
  - DRUG RESISTANCE [None]
  - KIDNEY TRANSPLANT REJECTION [None]
